FAERS Safety Report 16635732 (Version 1)
Quarter: 2019Q3

REPORT INFORMATION
  Report Type: Spontaneous
  Country: US (occurrence: US)
  Receive Date: 20190726
  Receipt Date: 20190726
  Transmission Date: 20191004
  Serious: No
  Sender: FDA-Public Use
  Company Number: US-ASTRAZENECA-2019SE95929

PATIENT
  Age: 851 Month
  Sex: Male
  Weight: 56.7 kg

DRUGS (3)
  1. SPIRIVA [Concomitant]
     Active Substance: TIOTROPIUM BROMIDE MONOHYDRATE
     Indication: EMPHYSEMA
     Dates: start: 20190520
  2. SYMBICORT [Suspect]
     Active Substance: BUDESONIDE\FORMOTEROL FUMARATE DIHYDRATE
     Indication: EMPHYSEMA
     Dosage: 160/4.5MCG, TWO INHALATIONS, TWICE A DAY
     Route: 055
     Dates: start: 20190520, end: 20190618
  3. ALBUTEROL. [Concomitant]
     Active Substance: ALBUTEROL
     Dosage: AS REQUIRED

REACTIONS (4)
  - Flatulence [Recovered/Resolved]
  - Product dose omission [Not Recovered/Not Resolved]
  - Taste disorder [Recovered/Resolved]
  - Abdominal pain upper [Recovered/Resolved]

NARRATIVE: CASE EVENT DATE: 201905
